FAERS Safety Report 5376258-1 (Version None)
Quarter: 2007Q3

REPORT INFORMATION
  Report Type: 
  Country: None (occurrence: None)
  Receive Date: 20070702
  Receipt Date: 20070618
  Transmission Date: 20080115
  Serious: Yes (Life-Threatening)
  Sender: FDA-Public Use
  Company Number: FR-ROCHE-503486

PATIENT
  Age: 68 Year
  Sex: Male

DRUGS (14)
  1. ROCEPHIN [Suspect]
     Dosage: PUNCTUALLY THERAPY FOR SEVERAL YEARS.
     Route: 042
  2. TUSSIDANE [Concomitant]
  3. CELESTENE [Concomitant]
  4. IMOVANE [Concomitant]
  5. LYRICA [Concomitant]
  6. NEXIUM [Concomitant]
  7. TAMSULOSINE [Concomitant]
     Dosage: TRADE NAME REPORTED AS OMEXEL.
  8. ASPIRIN [Concomitant]
  9. LASIX [Concomitant]
  10. NITROGLYCERIN [Concomitant]
     Dosage: TRADE NAME REPORTED AS EPINITRIL.
  11. DIFFU K [Concomitant]
  12. TRIATEC [Concomitant]
  13. CARDENSIEL [Concomitant]
  14. RIVOTRIL [Concomitant]

REACTIONS (3)
  - ANAPHYLACTIC SHOCK [None]
  - SYNCOPE [None]
  - VENTRICULAR TACHYCARDIA [None]
